FAERS Safety Report 4599250-3 (Version None)
Quarter: 2005Q1

REPORT INFORMATION
  Report Type: 
  Country: None (occurrence: None)
  Receive Date: 20050302
  Receipt Date: 20050302
  Transmission Date: 20050727
  Serious: No
  Sender: FDA-Public Use
  Company Number: None

PATIENT
  Age: 85 Year
  Sex: Female

DRUGS (6)
  1. GLIPIZIDE [Suspect]
     Dosage: 2 TAB IN MORNING AND 2 TAB IN EVENING
     Dates: start: 20050215, end: 20050224
  2. ACTOS [Concomitant]
  3. CLONIDINE [Concomitant]
  4. ALBUTEROL [Concomitant]
  5. NIFEDIPINE [Concomitant]
  6. ACIPHEX [Concomitant]

REACTIONS (1)
  - BLOOD GLUCOSE INCREASED [None]
